FAERS Safety Report 4660282-8 (Version None)
Quarter: 2005Q2

REPORT INFORMATION
  Report Type: 
  Country: None (occurrence: None)
  Receive Date: 20050427
  Receipt Date: 20050202
  Transmission Date: 20051028
  Serious: No
  Sender: FDA-Public Use
  Company Number: 212217

PATIENT
  Age: 45 Year
  Sex: Female
  Weight: 77.1 kg

DRUGS (7)
  1. XOLAIR [Suspect]
     Indication: ASTHMA
     Dosage: 300 MG, QW, SUBCUTANEOUS
     Route: 058
     Dates: start: 20040901
  2. ALLERGY SHOTS (ALLERGENIC EXTRACTS) [Concomitant]
  3. INTAL [Concomitant]
  4. PULMICORT [Concomitant]
  5. SEREVENT [Concomitant]
  6. ZYRTEC [Concomitant]
  7. SINGULAIR [Concomitant]

REACTIONS (1)
  - ARTHRALGIA [None]
